FAERS Safety Report 11470655 (Version 2)
Quarter: 2015Q3

REPORT INFORMATION
  Report Type: Spontaneous
  Country: US (occurrence: US)
  Receive Date: 20150903
  Receipt Date: 20150903
  Transmission Date: 20151125
  Serious: No
  Sender: FDA-Public Use
  Company Number: US-ELI_LILLY_AND_COMPANY-US201201000239

PATIENT
  Age: 35 Year
  Sex: Male

DRUGS (1)
  1. CYMBALTA [Suspect]
     Active Substance: DULOXETINE HYDROCHLORIDE
     Indication: BACK PAIN
     Dosage: 60 MG, QD

REACTIONS (7)
  - Feeling cold [Unknown]
  - Piloerection [Unknown]
  - Dry mouth [Unknown]
  - Vision blurred [Unknown]
  - Back pain [Unknown]
  - Hyperhidrosis [Unknown]
  - Dizziness [Unknown]
